FAERS Safety Report 5798829-0 (Version None)
Quarter: 2008Q2

REPORT INFORMATION
  Report Type: 
  Country: None (occurrence: None)
  Receive Date: 20080630
  Receipt Date: 20080616
  Transmission Date: 20081010
  Serious: Yes (Death, Life-Threatening, Hospitalization)
  Sender: FDA-Public Use
  Company Number: 001372

PATIENT
  Age: 50 Year
  Sex: Female

DRUGS (7)
  1. BUSULFEX [Suspect]
     Indication: STEM CELL TRANSPLANT
     Dosage: 32 ML, INTRAVENOUS; 16 ML, DAILY DOSE; INTRAVENOUS
     Route: 042
     Dates: start: 20070524, end: 20070524
  2. BUSULFEX [Suspect]
     Indication: STEM CELL TRANSPLANT
     Dosage: 32 ML, INTRAVENOUS; 16 ML, DAILY DOSE; INTRAVENOUS
     Route: 042
     Dates: start: 20070525, end: 20070525
  3. FLUDARABINE PHOSPHATE [Concomitant]
  4. VALPROATE SODIUM [Concomitant]
  5. MELPHALAN       (MELPHALAN) [Concomitant]
  6. METHOTREXATE [Concomitant]
  7. CYCLOSPORINE [Concomitant]

REACTIONS (17)
  - ANOREXIA [None]
  - BONE MARROW TRANSPLANT [None]
  - CYTOMEGALOVIRUS VIRAEMIA [None]
  - ENTEROCOLITIS [None]
  - GENERAL PHYSICAL HEALTH DETERIORATION [None]
  - GRAFT VERSUS HOST DISEASE [None]
  - MALAISE [None]
  - MULTI-ORGAN FAILURE [None]
  - MYELODYSPLASTIC SYNDROME [None]
  - NAUSEA [None]
  - PNEUMONIA [None]
  - POST PROCEDURAL COMPLICATION [None]
  - STAPHYLOCOCCAL SEPSIS [None]
  - STOMATITIS [None]
  - THROMBOCYTOPENIA [None]
  - THROMBOTIC MICROANGIOPATHY [None]
  - VOMITING [None]
